FAERS Safety Report 9689806 (Version 4)
Quarter: 2014Q1

REPORT INFORMATION
  Report Type: Spontaneous
  Country: JP (occurrence: JP)
  Receive Date: 20131115
  Receipt Date: 20140210
  Transmission Date: 20141002
  Serious: Yes (Death, Life-Threatening, Hospitalization, Other)
  Sender: FDA-Public Use
  Company Number: JP-BRISTOL-MYERS SQUIBB COMPANY-19604123

PATIENT
  Age: 54 Year
  Sex: Female

DRUGS (2)
  1. ERBITUX SOLN FOR INF 5MG/ML [Suspect]
     Indication: COLORECTAL CANCER RECURRENT
     Dosage: RECENT DOSE 24SEP13
     Route: 041
     Dates: start: 20130828, end: 20130924
  2. IRINOTECAN [Suspect]
     Indication: COLORECTAL CANCER RECURRENT
     Dosage: RECENT DOSE 09SEP13
     Route: 041
     Dates: end: 20130909

REACTIONS (5)
  - Blood bilirubin increased [Fatal]
  - Ventricular tachycardia [Recovered/Resolved]
  - Decreased appetite [Not Recovered/Not Resolved]
  - Altered state of consciousness [Recovered/Resolved]
  - Hypoglycaemia [Recovered/Resolved]
